FAERS Safety Report 18526992 (Version 1)
Quarter: 2020Q4

REPORT INFORMATION
  Report Type: Spontaneous
  Country: US (occurrence: US)
  Receive Date: 20201119
  Receipt Date: 20201119
  Transmission Date: 20210114
  Serious: No
  Sender: FDA-Public Use
  Company Number: None

PATIENT
  Age: 18 Year
  Sex: Female
  Weight: 58.2 kg

DRUGS (13)
  1. CALCIUM CARBONATE 500 MG BID [Concomitant]
     Dates: start: 20201111, end: 20201116
  2. LISINOPRIL 2.5MG DAILY [Concomitant]
     Dates: start: 20201111, end: 20201116
  3. BENADRYL 50 MG CAP [Concomitant]
     Dates: start: 20201113, end: 20201113
  4. RITUXAN [Suspect]
     Active Substance: RITUXIMAB
     Indication: NEPHRITIS
     Dosage: ?          OTHER FREQUENCY:Q 2 WEEKS;?
     Route: 042
     Dates: start: 20201113, end: 20201113
  5. FAMOTIDINE 20 MG BID [Concomitant]
     Dates: start: 20201111, end: 20201116
  6. AMLODIPINE 5 MG DAILY [Concomitant]
     Dates: start: 20201111, end: 20201116
  7. CELLCEPT 1500MG BID [Concomitant]
     Dates: start: 20201111, end: 20201113
  8. DOCUSATE SODIUM 100MG DAILY [Concomitant]
     Dates: start: 20201111, end: 20201116
  9. ACETAMINOPHEN 650MG ONCE [Concomitant]
     Dates: start: 20201113, end: 20201113
  10. RITUXAN [Suspect]
     Active Substance: RITUXIMAB
     Indication: SYSTEMIC LUPUS ERYTHEMATOSUS
     Dosage: ?          OTHER FREQUENCY:Q 2 WEEKS;?
     Route: 042
     Dates: start: 20201113, end: 20201113
  11. METHYLPREDNISOLONE 1000MG IV [Concomitant]
     Dates: start: 20201111, end: 20201113
  12. HYDROXYCHLOROQUINE 200MG DAILY [Concomitant]
     Dates: start: 20201111, end: 20201116
  13. SENNA 2 TS DAILY [Concomitant]
     Dates: start: 20201111, end: 20201115

REACTIONS (7)
  - Infusion related reaction [None]
  - Chest pain [None]
  - Anxiety [None]
  - Refusal of treatment by patient [None]
  - Dyspnoea [None]
  - Rash erythematous [None]
  - Hypersensitivity [None]

NARRATIVE: CASE EVENT DATE: 20201113
